FAERS Safety Report 24112616 (Version 1)
Quarter: 2024Q3

REPORT INFORMATION
  Report Type: Spontaneous
  Country: JP (occurrence: None)
  Receive Date: 20240719
  Receipt Date: 20240719
  Transmission Date: 20241017
  Serious: Yes (Death, Other)
  Sender: ASTRAZENECA
  Company Number: 2023A257476

PATIENT
  Sex: Female

DRUGS (1)
  1. LYNPARZA [Suspect]
     Active Substance: OLAPARIB
     Indication: Ovarian cancer recurrent
     Dosage: DOSE UNKNOWN
     Route: 048

REACTIONS (2)
  - Myelodysplastic syndrome [Fatal]
  - Ovarian cancer recurrent [Unknown]

NARRATIVE: CASE EVENT DATE: 20230801
